FAERS Safety Report 6628598-3 (Version None)
Quarter: 2010Q1

REPORT INFORMATION
  Report Type: 
  Country: None (occurrence: None)
  Receive Date: 20100311
  Receipt Date: 20100225
  Transmission Date: 20100710
  Serious: Yes (Hospitalization)
  Sender: FDA-Public Use
  Company Number: JP-TEVA-226744ISR

PATIENT
  Sex: Female
  Weight: 49.2 kg

DRUGS (3)
  1. CISPLATIN [Suspect]
     Indication: GASTRIC CANCER
     Route: 042
     Dates: start: 20100127
  2. AXITINIB [Suspect]
     Indication: GASTRIC CANCER
     Route: 048
     Dates: start: 20100127
  3. CAPECITABINE [Suspect]
     Indication: GASTRIC CANCER
     Route: 048
     Dates: start: 20100127

REACTIONS (1)
  - CHOLECYSTITIS [None]
